FAERS Safety Report 9894829 (Version 2)
Quarter: 2014Q1

REPORT INFORMATION
  Report Type: Report from Study
  Country: US (occurrence: US)
  Receive Date: 20140213
  Receipt Date: 20140304
  Transmission Date: 20141002
  Serious: Yes (Hospitalization)
  Sender: FDA-Public Use
  Company Number: US-BRISTOL-MYERS SQUIBB COMPANY-20133609

PATIENT
  Age: 71 Year
  Sex: Male
  Weight: 108.9 kg

DRUGS (10)
  1. BLINDED: NIVOLUMAB [Suspect]
     Indication: MALIGNANT MELANOMA
     Route: 042
     Dates: start: 20131127, end: 20140108
  2. IPILIMUMAB [Suspect]
     Indication: MALIGNANT MELANOMA
     Route: 042
     Dates: start: 20131127, end: 20140108
  3. BLINDED: PLACEBO [Suspect]
     Indication: MALIGNANT MELANOMA
     Dates: start: 20131127, end: 20140108
  4. ASPIRIN [Concomitant]
     Dates: start: 20100603
  5. LIPITOR [Concomitant]
     Dates: start: 20100603
  6. MULTIVITAMINS [Concomitant]
     Dates: start: 20100603
  7. VERAPAMIL [Concomitant]
     Dates: start: 20130603
  8. EUCERIN CREAM [Concomitant]
     Dosage: CONTROLLED RELEASE
     Dates: start: 20131127
  9. CLOBETASOL [Concomitant]
     Dosage: 1DF: 1.00 UNITS NOS,STRENGHTH: 0.05%
     Dates: start: 20131226
  10. CETRIZINE [Concomitant]

REACTIONS (2)
  - Pneumonitis [Recovering/Resolving]
  - Sepsis [Unknown]
